FAERS Safety Report 10034947 (Version 1)
Quarter: 2014Q1

REPORT INFORMATION
  Report Type: Spontaneous
  Country: FR (occurrence: FR)
  Receive Date: 20140325
  Receipt Date: 20140325
  Transmission Date: 20141002
  Serious: Yes (Hospitalization)
  Sender: FDA-Public Use
  Company Number: FR-SA-2014SA032131

PATIENT
  Age: 81 Year
  Sex: Female

DRUGS (15)
  1. RIFADINE [Suspect]
     Route: 048
     Dates: start: 20130926, end: 20130930
  2. CIFLOX [Suspect]
     Indication: INFECTION
     Route: 048
     Dates: start: 20130910, end: 20130930
  3. KARDEGIC [Concomitant]
     Route: 048
  4. EUPRESSYL [Concomitant]
     Dosage: STRENGTH: 30 MG
  5. TRIATEC [Concomitant]
     Dosage: STRENGTH: 5 MG
  6. PRAVASTATIN [Concomitant]
  7. INEXIUM [Concomitant]
  8. ALPRAZOLAM [Concomitant]
  9. DOLIPRANE [Concomitant]
  10. IMOVANE [Concomitant]
  11. CLINDAMYCIN HYDROCHLORIDE [Concomitant]
     Dosage: FIRST IV THEN ORAL
     Dates: end: 201309
  12. LINEZOLID [Concomitant]
  13. ORBENINE [Concomitant]
  14. OFLOCET [Concomitant]
  15. CIPROFLOXACIN HYDROCHLORIDE [Concomitant]
     Dates: end: 20130910

REACTIONS (6)
  - Hepatocellular injury [Recovering/Resolving]
  - Alanine aminotransferase increased [Recovering/Resolving]
  - Aspartate aminotransferase increased [Recovering/Resolving]
  - Cholestasis [Recovering/Resolving]
  - Blood alkaline phosphatase increased [Recovering/Resolving]
  - Blood bilirubin increased [Recovering/Resolving]
